FAERS Safety Report 4278910-8 (Version None)
Quarter: 2004Q1

REPORT INFORMATION
  Report Type: 
  Country: None (occurrence: None)
  Receive Date: 20040122
  Receipt Date: 20040122
  Transmission Date: 20041129
  Serious: Yes (Hospitalization)
  Sender: FDA-Public Use
  Company Number: None

PATIENT
  Sex: Male

DRUGS (6)
  1. ASPIRIN [Suspect]
     Indication: CEREBROVASCULAR ACCIDENT
     Dosage: 81 MG DAILY ORAL
     Route: 048
  2. CLOPIDOGREL 75 MG [Suspect]
     Indication: CEREBROVASCULAR ACCIDENT
     Dosage: 75 MG DAILY ORAL
     Route: 048
  3. METOPROLOL [Concomitant]
  4. ACETYLCYSTEINE [Concomitant]
  5. PANTOPRAZOLE [Concomitant]
  6. COTRIM [Concomitant]

REACTIONS (3)
  - ASTHENIA [None]
  - GASTROINTESTINAL HAEMORRHAGE [None]
  - HAEMATEMESIS [None]
